FAERS Safety Report 6269016-7 (Version None)
Quarter: 2009Q3

REPORT INFORMATION
  Report Type: 
  Country: None (occurrence: None)
  Receive Date: 20090715
  Receipt Date: 20090708
  Transmission Date: 20100115
  Serious: Yes (Congenital Anomaly)
  Sender: FDA-Public Use
  Company Number: A0796761A

PATIENT
  Age: 0 Year
  Sex: Female
  Weight: 2.3 kg

DRUGS (2)
  1. LAMICTAL [Suspect]
     Indication: EPILEPSY
  2. ZOFRAN [Concomitant]
     Indication: NAUSEA

REACTIONS (4)
  - ATRIAL SEPTAL DEFECT [None]
  - DRUG EXPOSURE DURING PREGNANCY [None]
  - PREMATURE BABY [None]
  - PULMONARY MALFORMATION [None]
